FAERS Safety Report 16002019 (Version 2)
Quarter: 2019Q2

REPORT INFORMATION
  Report Type: Spontaneous
  Country: US (occurrence: US)
  Receive Date: 20190225
  Receipt Date: 20190424
  Transmission Date: 20190711
  Serious: Yes (Other)
  Sender: FDA-Public Use
  Company Number: US-PFIZER INC-2019063154

PATIENT
  Age: 68 Year
  Sex: Male

DRUGS (5)
  1. OMEPRAZOLE. [Concomitant]
     Active Substance: OMEPRAZOLE
     Indication: GASTROOESOPHAGEAL REFLUX DISEASE
     Dosage: 20 MG, UNK
  2. TIMOPTIC [Concomitant]
     Active Substance: TIMOLOL MALEATE
     Indication: GLAUCOMA
     Dosage: 2 GTT, UNK (1 DROP EACH EYE AM/PM)
  3. EFFEXOR XR [Suspect]
     Active Substance: VENLAFAXINE HYDROCHLORIDE
     Dosage: 75 MG, UNK (MORE TIMES PER DAY)
  4. EFFEXOR XR [Suspect]
     Active Substance: VENLAFAXINE HYDROCHLORIDE
     Dosage: 150 MG, 1X/DAY
  5. EFFEXOR XR [Suspect]
     Active Substance: VENLAFAXINE HYDROCHLORIDE
     Indication: DEPRESSION
     Dosage: UNK (TAKEN 37.5 TO 225MG)

REACTIONS (14)
  - Headache [Unknown]
  - Heart rate increased [Unknown]
  - Feeling abnormal [Unknown]
  - Lymphadenopathy [Unknown]
  - Malaise [Unknown]
  - Chills [Unknown]
  - Cystinosis [Unknown]
  - Migraine [Unknown]
  - Visual impairment [Unknown]
  - Serotonin syndrome [Unknown]
  - Hyperhidrosis [Unknown]
  - Fatigue [Unknown]
  - Nausea [Unknown]
  - Drug ineffective [Unknown]

NARRATIVE: CASE EVENT DATE: 20181218
